FAERS Safety Report 15522072 (Version 1)
Quarter: 2018Q4

REPORT INFORMATION
  Report Type: Spontaneous
  Country: US (occurrence: US)
  Receive Date: 20181018
  Receipt Date: 20181018
  Transmission Date: 20190205
  Serious: No
  Sender: FDA-Public Use
  Company Number: None

PATIENT
  Age: 49 Year
  Sex: Female
  Weight: 58.5 kg

DRUGS (1)
  1. BUPROPION HCL XL 300MG MADE BY CIPLA USA INC MARKED I 71 [Suspect]
     Active Substance: BUPROPION HYDROCHLORIDE
     Indication: ANXIETY
     Dosage: ?          QUANTITY:1 CAPSULE(S);?
     Route: 048

REACTIONS (6)
  - Dizziness [None]
  - Anxiety [None]
  - Depression [None]
  - Nausea [None]
  - Product substitution [None]
  - Drug ineffective [None]

NARRATIVE: CASE EVENT DATE: 20181018
